FAERS Safety Report 20092397 (Version 1)
Quarter: 2021Q4

REPORT INFORMATION
  Report Type: Spontaneous
  Country: JP (occurrence: JP)
  Receive Date: 20211119
  Receipt Date: 20211119
  Transmission Date: 20220303
  Serious: Yes (Other)
  Sender: FDA-Public Use
  Company Number: JP-009507513-2106JPN001662

PATIENT
  Age: 47 Year
  Sex: Male

DRUGS (3)
  1. ISENTRESS [Suspect]
     Active Substance: RALTEGRAVIR POTASSIUM
     Indication: HIV infection
     Dosage: UNK
     Route: 065
  2. EMTRICITABINE\TENOFOVIR [Suspect]
     Active Substance: EMTRICITABINE\TENOFOVIR
     Indication: HIV infection
     Dosage: 1 DOSAGE FORM, QD
     Dates: start: 20170530
  3. ISENTRESS [Suspect]
     Active Substance: RALTEGRAVIR POTASSIUM
     Indication: HIV infection
     Dosage: 1200 MILLIGRAM

REACTIONS (6)
  - Blood triglycerides increased [Not Recovered/Not Resolved]
  - Type 2 diabetes mellitus [Unknown]
  - Malaise [Recovering/Resolving]
  - Faeces soft [Recovered/Resolved]
  - Diabetic nephropathy [Unknown]
  - Weight increased [Unknown]

NARRATIVE: CASE EVENT DATE: 20170613
